FAERS Safety Report 8423537-7 (Version None)
Quarter: 2012Q2

REPORT INFORMATION
  Report Type: 
  Country: None (occurrence: None)
  Receive Date: 20120323
  Receipt Date: 20110321
  Transmission Date: 20120825
  Serious: Yes (Disabling)
  Sender: FDA-Public Use
  Company Number: 163-21880-11022557

PATIENT
  Age: 81 Year
  Sex: Female
  Weight: 58.9676 kg

DRUGS (11)
  1. LENALIDOMIDE [Suspect]
     Indication: MULTIPLE MYELOMA
     Dosage: 10 MG, QD 21/7, PO
     Route: 048
     Dates: start: 20100212
  2. LORCET PLUS (VICODIN) [Concomitant]
  3. XANAX [Concomitant]
  4. METOPROLOL TARTRATE [Concomitant]
  5. PRILOSEC [Concomitant]
  6. NEURONTIN [Concomitant]
  7. SINAREST (CO-TYLENOL) [Concomitant]
  8. OXYCONTIN [Concomitant]
  9. DECADRON [Concomitant]
  10. PLAVIX [Concomitant]
  11. ZOCOR [Concomitant]

REACTIONS (1)
  - DRUG INEFFECTIVE [None]
